FAERS Safety Report 4931492-7 (Version None)
Quarter: 2006Q1

REPORT INFORMATION
  Report Type: 
  Country: None (occurrence: None)
  Receive Date: 20060118
  Receipt Date: 20050926
  Transmission Date: 20060701
  Serious: Yes (Death)
  Sender: FDA-Public Use
  Company Number: US-JNJFOC-20050903643

PATIENT
  Age: 74 Year
  Sex: Male
  Weight: 71.2147 kg

DRUGS (8)
  1. DOXIL [Suspect]
     Indication: MULTIPLE MYELOMA
     Dosage: 57 MG, INTRAVENOUS
     Route: 042
     Dates: start: 20050606
  2. ZOCOR [Concomitant]
  3. TOPROL (METOPROLOL SUCCINATE) TABLETS [Concomitant]
  4. DEXAMETHASONE [Concomitant]
  5. PREDNISONE (PREDNISONE) TABLETS [Concomitant]
  6. ANTIDEPRESSANT (ANTIDEPRESSANTS) [Concomitant]
  7. FLOMAX [Concomitant]
  8. ZOMETA [Concomitant]

REACTIONS (1)
  - MULTIPLE MYELOMA [None]
